FAERS Safety Report 11530018 (Version 1)
Quarter: 2015Q3

REPORT INFORMATION
  Report Type: Spontaneous
  Country: DK (occurrence: DK)
  Receive Date: 20150921
  Receipt Date: 20150921
  Transmission Date: 20151125
  Serious: Yes (Disabling)
  Sender: FDA-Public Use
  Company Number: DK-MALLINCKRODT-T201504306

PATIENT
  Age: 52 Year
  Sex: Male
  Weight: 115 kg

DRUGS (3)
  1. SILDENAFIL ^ACCORD^ [Concomitant]
     Indication: PRODUCT USED FOR UNKNOWN INDICATION
  2. OPTIRAY 300 [Suspect]
     Active Substance: IOVERSOL
     Indication: SCAN
     Dosage: STYRKE: 300 MG IOD/ML.
     Route: 042
     Dates: start: 20150604
  3. DOLOL [Concomitant]
     Active Substance: TRAMADOL
     Indication: PAIN
     Dosage: DOSE: 1, STRENGTH: 200
     Route: 048

REACTIONS (2)
  - Tinnitus [Not Recovered/Not Resolved]
  - Hypoacusis [Not Recovered/Not Resolved]

NARRATIVE: CASE EVENT DATE: 20150604
